FAERS Safety Report 5417616-6 (Version None)
Quarter: 2007Q3

REPORT INFORMATION
  Report Type: 
  Country: None (occurrence: None)
  Receive Date: 20070718
  Receipt Date: 20070326
  Transmission Date: 20080115
  Serious: Yes (Hospitalization, Disabling, Other)
  Sender: FDA-Public Use
  Company Number: 2007025300

PATIENT
  Age: 44 Year
  Sex: Male

DRUGS (3)
  1. CELEBREX [Suspect]
     Indication: ARTHRALGIA
     Dosage: 400 MG (200 MG, 2 IN 1 D) ORAL
     Route: 048
     Dates: start: 20010101
  2. CELEBREX [Suspect]
     Indication: PAIN MANAGEMENT
     Dosage: 400 MG (200 MG, 2 IN 1 D) ORAL
     Route: 048
     Dates: start: 20010101
  3. VIOXX [Suspect]
     Dosage: ORAL
     Route: 048

REACTIONS (6)
  - ABDOMINAL PAIN [None]
  - ANXIETY [None]
  - CORONARY ARTERY DISEASE [None]
  - DEEP VEIN THROMBOSIS [None]
  - DEPRESSION [None]
  - WEIGHT INCREASED [None]
